FAERS Safety Report 6443843-5 (Version None)
Quarter: 2009Q4

REPORT INFORMATION
  Report Type: 
  Country: None (occurrence: None)
  Receive Date: 20091113
  Receipt Date: 20091029
  Transmission Date: 20100525
  Serious: Yes (Life-Threatening, Hospitalization)
  Sender: FDA-Public Use
  Company Number: 2009003307

PATIENT
  Age: 62 Year
  Sex: Male

DRUGS (8)
  1. ERLOTINIB HYDROCHLORIDE [Suspect]
     Indication: NON-SMALL CELL LUNG CANCER
     Dosage: (150 MG,QD),ORAL
     Route: 048
     Dates: start: 20090819, end: 20090913
  2. CLARITHROMYCIN [Concomitant]
  3. MUCOSOLVAN (AMBROXOL HYDROCHLORIDE) [Concomitant]
  4. LANSOPRAZOLE [Concomitant]
  5. SPIRIVA [Concomitant]
  6. URSODIOL [Concomitant]
  7. BACTRIM [Concomitant]
  8. PREDNISOLONE [Concomitant]

REACTIONS (5)
  - CONDITION AGGRAVATED [None]
  - HEPATIC CANCER METASTATIC [None]
  - HEPATIC FUNCTION ABNORMAL [None]
  - MALIGNANT NEOPLASM PROGRESSION [None]
  - NON-SMALL CELL LUNG CANCER [None]
